FAERS Safety Report 22304788 (Version 6)
Quarter: 2024Q4

REPORT INFORMATION
  Report Type: Spontaneous
  Country: US (occurrence: US)
  Receive Date: 20230510
  Receipt Date: 20241230
  Transmission Date: 20250115
  Serious: No
  Sender: PFIZER
  Company Number: US-PFIZER INC-PV202300079432

PATIENT
  Age: 82 Year
  Sex: Female

DRUGS (3)
  1. IBRANCE [Suspect]
     Active Substance: PALBOCICLIB
     Indication: Breast cancer female
     Dosage: 100 MG, TAKE 1 TABLET (100 MG TOTAL) BY MOUTH 1 (ONE) TIME EACH DAY. 21 DAYS ON AND 7 DAYS
     Route: 048
  2. IBRANCE [Suspect]
     Active Substance: PALBOCICLIB
     Dosage: 125 MG, TAKE ONE TABLET BY MOUTH ONCE DAILY, 3 WEEKS ON 1 WEEK OFF, #21, 28 DAY CYCLE
     Route: 048
  3. IBRANCE [Suspect]
     Active Substance: PALBOCICLIB
     Dosage: 75 MG TOTAL) 1 (ONE) TIME EACH DAY. 21 DAYS ON AND 7 DAYS OFF
     Route: 048
     Dates: start: 20240716

REACTIONS (3)
  - Hormone level abnormal [Unknown]
  - Bone pain [Unknown]
  - Product prescribing error [Unknown]
